FAERS Safety Report 8423375 (Version 2)
Quarter: 2012Q4

REPORT INFORMATION
  Report Type: Report from Study
  Country: US (occurrence: US)
  Receive Date: 20120223
  Receipt Date: 20121219
  Transmission Date: 20130627
  Serious: Yes (Other)
  Sender: FDA-Public Use
  Company Number: US-ROCHE-GNE260612

PATIENT
  Age: 33 Year
  Sex: Female

DRUGS (6)
  1. OMALIZUMAB [Suspect]
     Indication: ASTHMA
     Dosage: 300 mg, Q4W
     Route: 058
     Dates: start: 20041209
  2. OMALIZUMAB [Suspect]
     Route: 058
  3. ASMANEX [Concomitant]
     Indication: ASTHMA
     Dosage: UNK
     Route: 065
  4. SEREVENT [Concomitant]
     Indication: ASTHMA
     Dosage: UNK
     Route: 065
  5. ZYRTEC [Concomitant]
     Indication: HYPERSENSITIVITY
     Dosage: UNK
     Route: 065
  6. PRENATAL VITAMINS [Concomitant]
     Indication: PREGNANCY
     Dosage: UNK
     Route: 065

REACTIONS (2)
  - Palpitations [Recovered/Resolved]
  - Exposure during pregnancy [Unknown]
